FAERS Safety Report 6582939-4 (Version None)
Quarter: 2010Q1

REPORT INFORMATION
  Report Type: 
  Country: None (occurrence: None)
  Receive Date: 20100216
  Receipt Date: 20100212
  Transmission Date: 20100710
  Serious: Yes (Hospitalization, Other)
  Sender: FDA-Public Use
  Company Number: ES-BRISTOL-MYERS SQUIBB COMPANY-14878334

PATIENT
  Age: 52 Year
  Sex: Male

DRUGS (2)
  1. REYATAZ [Suspect]
     Indication: HIV INFECTION
     Route: 048
     Dates: start: 20060101
  2. NORVIR [Concomitant]
     Dosage: 1 DF=100
     Dates: start: 20070101, end: 20070101

REACTIONS (2)
  - NEPHROLITHIASIS [None]
  - RENAL FAILURE [None]
